FAERS Safety Report 4713817-0 (Version None)
Quarter: 2005Q3

REPORT INFORMATION
  Report Type: 
  Country: None (occurrence: None)
  Receive Date: 20050713
  Receipt Date: 20050627
  Transmission Date: 20060218
  Serious: Yes (Other)
  Sender: FDA-Public Use
  Company Number: USA0506101385

PATIENT
  Age: 58 Year
  Sex: Female

DRUGS (1)
  1. FORTEO [Suspect]
     Indication: OSTEOPENIA
     Dates: start: 20050501

REACTIONS (5)
  - ANKLE FRACTURE [None]
  - ARTHRALGIA [None]
  - FALL [None]
  - JOINT SPRAIN [None]
  - PHARMACEUTICAL PRODUCT COMPLAINT [None]
